FAERS Safety Report 20331496 (Version 1)
Quarter: 2022Q1

REPORT INFORMATION
  Report Type: Spontaneous
  Country: US (occurrence: None)
  Receive Date: 20220112
  Receipt Date: 20220112
  Transmission Date: 20220423
  Serious: Yes (Death)
  Sender: FDA-Public Use
  Company Number: None

PATIENT
  Age: 79 Year
  Sex: Female
  Weight: 104 kg

DRUGS (4)
  1. TOCILIZUMAB [Suspect]
     Active Substance: TOCILIZUMAB
     Indication: COVID-19
     Dosage: FREQUENCY : ONCE;?
     Route: 042
     Dates: start: 20220109, end: 20220109
  2. TOCILIZUMAB [Suspect]
     Active Substance: TOCILIZUMAB
     Indication: COVID-19
     Dosage: OTHER FREQUENCY : ONCE;?
     Route: 042
     Dates: start: 20220109, end: 20220109
  3. REMDESIVIR [Concomitant]
     Active Substance: REMDESIVIR
     Dates: start: 20220108, end: 20220109
  4. DEXAMETHASONE [Concomitant]
     Active Substance: DEXAMETHASONE
     Dates: start: 20220108, end: 20220111

REACTIONS (15)
  - Dyspnoea [None]
  - Productive cough [None]
  - Wheezing [None]
  - Pneumonia [None]
  - Blood glucose increased [None]
  - Liver function test increased [None]
  - Troponin increased [None]
  - Fibrin D dimer increased [None]
  - Streptococcus test positive [None]
  - SARS-CoV-2 test positive [None]
  - Acute coronary syndrome [None]
  - Ejection fraction decreased [None]
  - Acute kidney injury [None]
  - Insomnia [None]
  - Death [None]

NARRATIVE: CASE EVENT DATE: 20220111
